FAERS Safety Report 18511246 (Version 1)
Quarter: 2020Q4

REPORT INFORMATION
  Report Type: Spontaneous
  Country: US (occurrence: US)
  Receive Date: 20201117
  Receipt Date: 20201117
  Transmission Date: 20210114
  Serious: No
  Sender: FDA-Public Use
  Company Number: None

PATIENT
  Age: 24 Year
  Sex: Female
  Weight: 65.25 kg

DRUGS (3)
  1. NORETHINDRONE. [Concomitant]
     Active Substance: NORETHINDRONE
  2. VENLAFAXINE ER [Concomitant]
     Active Substance: VENLAFAXINE HYDROCHLORIDE
  3. PEACE OUT ACNE [Suspect]
     Active Substance: SALICYLIC ACID
     Indication: ACNE
     Dosage: ?          QUANTITY:1 PATCH(ES);?
     Route: 062
     Dates: start: 20200904

REACTIONS (2)
  - Skin burning sensation [None]
  - Adverse reaction [None]

NARRATIVE: CASE EVENT DATE: 20201116
